FAERS Safety Report 4365990-4 (Version None)
Quarter: 2004Q2

REPORT INFORMATION
  Report Type: 
  Country: None (occurrence: None)
  Receive Date: 20040520
  Receipt Date: 20040507
  Transmission Date: 20050107
  Serious: No
  Sender: FDA-Public Use
  Company Number: RS004434-CDN

PATIENT
  Age: 86 Year
  Sex: Female

DRUGS (3)
  1. RABEPRAZOLE SODIUM [Suspect]
     Dosage: 10 MG, 1 IN 1 D, ORAL
     Route: 048
     Dates: start: 20040208, end: 20040418
  2. ATENOLOL [Concomitant]
  3. NETZ [Concomitant]

REACTIONS (4)
  - COLITIS ULCERATIVE [None]
  - DRUG EFFECT DECREASED [None]
  - MIGRAINE [None]
  - MUSCLE SPASMS [None]
